FAERS Safety Report 10667678 (Version 1)
Quarter: 2014Q4

REPORT INFORMATION
  Report Type: Spontaneous
  Country: AU (occurrence: None)
  Receive Date: 20141218
  Receipt Date: 20141218
  Transmission Date: 20150529
  Serious: Yes (Other)
  Sender: FDA-Public Use
  Company Number: AU-ZYDUS-006083

PATIENT
  Age: 69 Year
  Sex: Female

DRUGS (1)
  1. ANASTROZOLE (ANASTROZOLE) (1-MG MILLIGRAMS)) [Suspect]
     Active Substance: ANASTROZOLE
     Indication: INVASIVE LOBULAR BREAST CARCINOMA
     Dosage: 1.0DAYS
     Route: 048

REACTIONS (5)
  - Hot flush [None]
  - Arthralgia [None]
  - Hyperhidrosis [None]
  - Headache [None]
  - Hypersensitivity vasculitis [None]
